FAERS Safety Report 8146958-9 (Version None)
Quarter: 2012Q1

REPORT INFORMATION
  Report Type: 
  Country: None (occurrence: None)
  Receive Date: 20120217
  Receipt Date: 20120208
  Transmission Date: 20120608
  Serious: Yes (Other)
  Sender: FDA-Public Use
  Company Number: US-ASTRAZENECA-2012SE06267

PATIENT
  Age: 82 Year
  Sex: Female

DRUGS (3)
  1. ATACAND [Suspect]
     Indication: CARDIAC DISORDER
     Route: 048
  2. SEVEN OTHER MEDICATIONS [Concomitant]
     Indication: CARDIAC FAILURE CONGESTIVE
  3. SEVEN OTHER MEDICATIONS [Concomitant]
     Indication: ANEURYSM

REACTIONS (7)
  - CEREBROVASCULAR ACCIDENT [None]
  - OPHTHALMOPLEGIA [None]
  - EYE INJURY [None]
  - VISUAL ACUITY REDUCED [None]
  - NERVE INJURY [None]
  - EYELID PAIN [None]
  - TRANSIENT ISCHAEMIC ATTACK [None]
